FAERS Safety Report 9235178 (Version 2)
Quarter: 2013Q2

REPORT INFORMATION
  Report Type: Report from Study
  Country: AR (occurrence: AR)
  Receive Date: 20130417
  Receipt Date: 20130424
  Transmission Date: 20140414
  Serious: No
  Sender: FDA-Public Use
  Company Number: AR-AMGEN-ARGCT2013024897

PATIENT
  Age: 69 Year
  Sex: Female
  Weight: 58 kg

DRUGS (6)
  1. ETANERCEPT [Suspect]
     Indication: RHEUMATOID ARTHRITIS
     Dosage: 50 MG, QWK
     Route: 058
     Dates: start: 20130123, end: 20130313
  2. NYSTATIN [Concomitant]
     Indication: ORAL CANDIDIASIS
     Dosage: 100000 (3 IN 1 D)
     Route: 048
     Dates: start: 20130206, end: 20130221
  3. NYSTATIN [Concomitant]
     Indication: ORAL CANDIDIASIS
  4. AMOXICILLIN [Concomitant]
     Indication: BRONCHITIS
     Dosage: 875 MG, BID
     Route: 048
     Dates: start: 20130214, end: 20130221
  5. CLAVULANIC ACID [Concomitant]
     Indication: BRONCHITIS
     Dosage: 125 MG, BID
     Route: 048
     Dates: start: 20130214, end: 20130221
  6. CLARITHROMYCIN [Concomitant]
     Indication: BRONCHITIS
     Dosage: 500 MG, BID
     Route: 048
     Dates: start: 20130221, end: 20130228

REACTIONS (1)
  - Urinary tract infection [Recovered/Resolved]
